FAERS Safety Report 8479109-1 (Version None)
Quarter: 2012Q2

REPORT INFORMATION
  Report Type: 
  Country: None (occurrence: None)
  Receive Date: 20120629
  Receipt Date: 20120627
  Transmission Date: 20120825
  Serious: Yes (Death, Hospitalization)
  Sender: FDA-Public Use
  Company Number: PHHY2012MX024149

PATIENT
  Sex: Male

DRUGS (2)
  1. TRILEPTAL [Suspect]
     Indication: EPILEPSY
     Dosage: 300 MG
     Route: 048
     Dates: start: 20110701, end: 20111101
  2. CARBAMAZEPINE [Suspect]
     Dosage: 1 DF, BID

REACTIONS (4)
  - HEAD INJURY [None]
  - MYOCARDIAL INFARCTION [None]
  - HYPOPHAGIA [None]
  - SPEECH DISORDER [None]
